FAERS Safety Report 19130025 (Version 1)
Quarter: 2021Q2

REPORT INFORMATION
  Report Type: Spontaneous
  Country: US (occurrence: US)
  Receive Date: 20210413
  Receipt Date: 20210413
  Transmission Date: 20210717
  Serious: Yes (Life-Threatening, Other)
  Sender: FDA-Public Use
  Company Number: US-ASTRAZENECA-2021A296780

PATIENT
  Sex: Male

DRUGS (2)
  1. PULMICORT RESPULES [Suspect]
     Active Substance: BUDESONIDE
     Indication: COVID-19
     Dosage: 0.5MG UNKNOWN
     Route: 055
  2. PULMICORT RESPULES [Suspect]
     Active Substance: BUDESONIDE
     Indication: ASTHMA
     Dosage: 0.5MG UNKNOWN
     Route: 055

REACTIONS (3)
  - Oxygen saturation decreased [Unknown]
  - Ill-defined disorder [Unknown]
  - Product use in unapproved indication [Unknown]
